FAERS Safety Report 24606670 (Version 3)
Quarter: 2025Q1

REPORT INFORMATION
  Report Type: Spontaneous
  Country: CA (occurrence: CA)
  Receive Date: 20241112
  Receipt Date: 20250314
  Transmission Date: 20250409
  Serious: Yes (Other)
  Sender: PFIZER
  Company Number: CA-PFIZER INC-202300148436

PATIENT
  Age: 83 Year
  Sex: Female
  Weight: 52 kg

DRUGS (8)
  1. RUXIENCE [Suspect]
     Active Substance: RITUXIMAB-PVVR
     Indication: Rheumatoid arthritis
     Route: 042
     Dates: start: 20210714, end: 20210728
  2. RUXIENCE [Suspect]
     Active Substance: RITUXIMAB-PVVR
     Route: 042
     Dates: start: 20220113, end: 20220127
  3. RUXIENCE [Suspect]
     Active Substance: RITUXIMAB-PVVR
     Route: 042
     Dates: start: 20220913, end: 20220927
  4. RUXIENCE [Suspect]
     Active Substance: RITUXIMAB-PVVR
     Route: 042
     Dates: start: 20220927
  5. CELEBREX [Concomitant]
     Active Substance: CELECOXIB
     Indication: Rheumatoid arthritis
     Dosage: 1 DF, 1X/DAY( 1 TAB OD)
     Route: 048
  6. FOLIC ACID [Concomitant]
     Active Substance: FOLIC ACID
     Indication: Rheumatoid arthritis
     Route: 048
  7. METHOTREXATE [Concomitant]
     Active Substance: METHOTREXATE
     Indication: Rheumatoid arthritis
     Dosage: 20 MG, WEEKLY
     Route: 058
  8. SYNTHROID [Concomitant]
     Active Substance: LEVOTHYROXINE SODIUM
     Route: 065

REACTIONS (11)
  - Spinal fracture [Unknown]
  - Back pain [Not Recovered/Not Resolved]
  - Musculoskeletal stiffness [Unknown]
  - Blood immunoglobulin M increased [Unknown]
  - Haemoglobin increased [Unknown]
  - Neck pain [Not Recovered/Not Resolved]
  - Arthralgia [Not Recovered/Not Resolved]
  - Spinal stenosis [Unknown]
  - Spinal stenosis [Unknown]
  - Spinal retrolisthesis [Unknown]
  - Spondylolisthesis [Unknown]

NARRATIVE: CASE EVENT DATE: 20230301
